FAERS Safety Report 15770867 (Version 4)
Quarter: 2019Q2

REPORT INFORMATION
  Report Type: Spontaneous
  Country: FI (occurrence: FI)
  Receive Date: 20181228
  Receipt Date: 20190401
  Transmission Date: 20190711
  Serious: Yes (Disabling, Other)
  Sender: FDA-Public Use
  Company Number: PHHY2018FI193766

PATIENT
  Sex: Female
  Weight: 103.6 kg

DRUGS (6)
  1. SANDOSTATIN LAR DEPOT [Suspect]
     Active Substance: OCTREOTIDE ACETATE
     Dosage: 20 MG, UNK
     Route: 030
     Dates: start: 20181217
  2. ESCITALOPRAM [Concomitant]
     Active Substance: ESCITALOPRAM OXALATE
     Indication: PRODUCT USED FOR UNKNOWN INDICATION
     Dosage: 15 MG, QD
     Route: 065
  3. CARDACE [Concomitant]
     Active Substance: RAMIPRIL
     Indication: PRODUCT USED FOR UNKNOWN INDICATION
     Dosage: 10 MG, QD
     Route: 065
  4. BURANA [Concomitant]
     Active Substance: IBUPROFEN
     Indication: PRODUCT USED FOR UNKNOWN INDICATION
     Dosage: UNK
     Route: 065
  5. SANDOSTATIN LAR DEPOT [Suspect]
     Active Substance: OCTREOTIDE ACETATE
     Indication: ACROMEGALY
     Dosage: 20 MG, INTERVALS OF 4-5 WEEKS
     Route: 030
  6. PRAVASTATIN. [Concomitant]
     Active Substance: PRAVASTATIN
     Indication: PRODUCT USED FOR UNKNOWN INDICATION
     Dosage: 40 MG, QD
     Route: 065

REACTIONS (17)
  - Gastrointestinal disorder [Unknown]
  - Hepatic steatosis [Unknown]
  - Nervousness [Unknown]
  - Sleep apnoea syndrome [Unknown]
  - Product dose omission [Recovered/Resolved]
  - Cardiometabolic syndrome [Unknown]
  - Hypertension [Unknown]
  - Arthropathy [Unknown]
  - Type IIb hyperlipidaemia [Unknown]
  - Osteosclerosis [Unknown]
  - Overweight [Unknown]
  - Polyp [Recovered/Resolved]
  - Syringe issue [Unknown]
  - Arthralgia [Unknown]
  - Haemorrhoids [Unknown]
  - Sedation [Unknown]
  - Osteoarthritis [Unknown]

NARRATIVE: CASE EVENT DATE: 2008
